FAERS Safety Report 9060024 (Version 1)
Quarter: 2013Q1

REPORT INFORMATION
  Report Type: Spontaneous
  Country: US (occurrence: None)
  Receive Date: 20130118
  Receipt Date: 20130118
  Transmission Date: 20140127
  Serious: Yes (Death)
  Sender: FDA-Public Use
  Company Number: AUR-APL-2013-00341

PATIENT
  Age: 22 Year
  Sex: Male

DRUGS (4)
  1. METOPROLOL [Suspect]
     Route: 048
  2. ATENOLOL (ATENOLOL) [Suspect]
  3. AMLODIPINE (AMLODIPINE) [Suspect]
  4. VERAPAMIL [Suspect]

REACTIONS (1)
  - Toxicity to various agents [None]
